FAERS Safety Report 12087032 (Version 2)
Quarter: 2016Q1

REPORT INFORMATION
  Report Type: Spontaneous
  Country: US (occurrence: US)
  Receive Date: 20160217
  Receipt Date: 20160217
  Transmission Date: 20160526
  Serious: No
  Sender: FDA-Public Use
  Company Number: US-ALLERGAN-1506742US

PATIENT
  Age: 44 Year
  Sex: Female
  Weight: 49.89 kg

DRUGS (2)
  1. RESTASIS [Suspect]
     Active Substance: CYCLOSPORINE
     Indication: DRY EYE
     Dosage: UNK, BID
     Route: 047
     Dates: start: 201201, end: 201205
  2. LUMIGAN [Suspect]
     Active Substance: BIMATOPROST
     Indication: GLAUCOMA
     Dosage: 1 GTT, QHS
     Route: 047

REACTIONS (8)
  - Dizziness [Unknown]
  - Headache [Unknown]
  - Stomatitis [Recovered/Resolved]
  - Chills [Unknown]
  - Throat tightness [Unknown]
  - Neck pain [Unknown]
  - Nausea [Unknown]
  - Hyperaesthesia [Unknown]

NARRATIVE: CASE EVENT DATE: 201202
